FAERS Safety Report 15032257 (Version 1)
Quarter: 2018Q2

REPORT INFORMATION
  Report Type: Spontaneous
  Country: AU (occurrence: AU)
  Receive Date: 20180619
  Receipt Date: 20180619
  Transmission Date: 20180711
  Serious: Yes (Other)
  Sender: FDA-Public Use
  Company Number: AU-ANIPHARMA-2018-AU-000041

PATIENT
  Age: 22 Year
  Sex: Female

DRUGS (1)
  1. FLUCONAZOLE (NON-SPECIFIC) [Suspect]
     Active Substance: FLUCONAZOLE
     Route: 048

REACTIONS (1)
  - Acute febrile neutrophilic dermatosis [Unknown]
